FAERS Safety Report 8916637 (Version 1)
Quarter: 2012Q4

REPORT INFORMATION
  Report Type: 
  Country: US (occurrence: US)
  Receive Date: 20121120
  Receipt Date: 20121120
  Transmission Date: 20130627
  Serious: No
  Sender: FDA-Public Use
  Company Number: US-009507513-1211USA007325

PATIENT

DRUGS (2)
  1. RIBAVIRIN [Suspect]
  2. PEGASYS [Suspect]

REACTIONS (1)
  - Disease recurrence [Unknown]
